FAERS Safety Report 6812292-X (Version None)
Quarter: 2010Q3

REPORT INFORMATION
  Report Type: 
  Country: None (occurrence: None)
  Receive Date: 20100701
  Receipt Date: 20100623
  Transmission Date: 20110219
  Serious: Yes (Other)
  Sender: FDA-Public Use
  Company Number: PHHY2010BR41685

PATIENT
  Age: 10 Year
  Sex: Female

DRUGS (2)
  1. FORASEQ [Suspect]
     Dosage: 1DF
  2. FORASEQ [Suspect]
     Dosage: 1 DF, BID

REACTIONS (9)
  - COUGH [None]
  - DENGUE FEVER [None]
  - EXPIRED DRUG ADMINISTERED [None]
  - INSOMNIA [None]
  - NASOPHARYNGITIS [None]
  - RHINITIS [None]
  - RHINORRHOEA [None]
  - TREATMENT NONCOMPLIANCE [None]
  - WHEEZING [None]
